FAERS Safety Report 15397695 (Version 2)
Quarter: 2018Q4

REPORT INFORMATION
  Report Type: Other
  Country: GB (occurrence: GB)
  Receive Date: 20180918
  Receipt Date: 20180927
  Transmission Date: 20190204
  Serious: Yes (Other)
  Sender: FDA-Public Use
  Company Number: GB-RARE DISEASE THERAPEUTICS, INC.-2055054

PATIENT
  Age: 33 Year
  Sex: Male

DRUGS (3)
  1. PURIXAN [Suspect]
     Active Substance: MERCAPTOPURINE
     Route: 065
     Dates: end: 201604
  2. ADALIMUMAB [Suspect]
     Active Substance: ADALIMUMAB
     Dates: start: 2012
  3. PREDNISOLONE. [Suspect]
     Active Substance: PREDNISOLONE
     Dates: start: 2007

REACTIONS (3)
  - Chronic hepatitis [None]
  - Off label use [None]
  - Hepatitis E [Recovered/Resolved]

NARRATIVE: CASE EVENT DATE: 201302
